FAERS Safety Report 8111405 (Version 4)
Quarter: 2013Q2

REPORT INFORMATION
  Report Type: Spontaneous
  Country: US (occurrence: US)
  Receive Date: 20110829
  Receipt Date: 20130430
  Transmission Date: 20140414
  Serious: Yes (Other)
  Sender: FDA-Public Use
  Company Number: US-ASTRAZENECA-2011SE49555

PATIENT
  Age: 67 Year
  Sex: Female
  Weight: 68 kg

DRUGS (33)
  1. SEROQUEL XR [Suspect]
     Indication: INSOMNIA
     Dosage: 300 MG ONCE
     Route: 048
     Dates: start: 2001
  2. SEROQUEL XR [Suspect]
     Indication: BIPOLAR DISORDER
     Dosage: 300 MG ONCE
     Route: 048
     Dates: start: 2001
  3. SEROQUEL XR [Suspect]
     Indication: INSOMNIA
     Route: 048
  4. SEROQUEL XR [Suspect]
     Indication: BIPOLAR DISORDER
     Route: 048
  5. SEROQUEL XR [Suspect]
     Indication: INSOMNIA
     Route: 048
  6. SEROQUEL XR [Suspect]
     Indication: BIPOLAR DISORDER
     Route: 048
  7. SEROQUEL XR [Suspect]
     Indication: INSOMNIA
     Route: 048
  8. SEROQUEL XR [Suspect]
     Indication: BIPOLAR DISORDER
     Route: 048
  9. SEROQUEL XR [Suspect]
     Indication: INSOMNIA
     Route: 048
  10. SEROQUEL XR [Suspect]
     Indication: BIPOLAR DISORDER
     Route: 048
  11. SEROQUEL XR [Suspect]
     Indication: INSOMNIA
     Dosage: 300 MG SEROQUEL XR AND ONE HALF OF A SEROQUEL XR FOR SEVEN DAYS
     Route: 048
     Dates: start: 20130410
  12. SEROQUEL XR [Suspect]
     Indication: BIPOLAR DISORDER
     Dosage: 300 MG SEROQUEL XR AND ONE HALF OF A SEROQUEL XR FOR SEVEN DAYS
     Route: 048
     Dates: start: 20130410
  13. SEROQUEL XR [Suspect]
     Indication: INSOMNIA
     Route: 048
     Dates: start: 20130417
  14. SEROQUEL XR [Suspect]
     Indication: BIPOLAR DISORDER
     Route: 048
     Dates: start: 20130417
  15. HYDROCO-APAP [Concomitant]
     Indication: PAIN
     Dosage: 7.5-500 TID (THREE TIMES A DAY)
     Route: 048
     Dates: start: 2009
  16. PLONACEPAM [Concomitant]
     Indication: BIPOLAR DISORDER
     Route: 048
     Dates: start: 2005
  17. PLONACEPAM [Concomitant]
     Indication: NERVOUS SYSTEM DISORDER
     Route: 048
     Dates: start: 2005
  18. NAPROXEN [Concomitant]
     Indication: PAIN
     Route: 048
     Dates: start: 201105
  19. SIMVALTA [Concomitant]
     Indication: ANXIETY
     Dosage: 90 MG ONCE
     Route: 048
     Dates: start: 2005
  20. SIMVALTA [Concomitant]
     Indication: BIPOLAR DISORDER
     Dosage: 90 MG ONCE
     Route: 048
     Dates: start: 2005
  21. SIMVALTA [Concomitant]
     Indication: ANXIETY
     Route: 048
     Dates: start: 200812
  22. SIMVALTA [Concomitant]
     Indication: BIPOLAR DISORDER
     Route: 048
     Dates: start: 200812
  23. CLONAZEPAM [Concomitant]
  24. VICODIN [Concomitant]
  25. CYMBALTA [Concomitant]
  26. TRAZADONE [Concomitant]
  27. TRAZADONE [Concomitant]
  28. TRAZADONE [Concomitant]
     Dates: start: 200812
  29. CRESTOR [Concomitant]
     Route: 048
  30. XANAX [Concomitant]
     Dosage: ONE TO TWO TABLETS DAILY
  31. ENDOCET [Concomitant]
     Dosage: 5/325 MG THREE TIMES A DAY
  32. SYMBICORT [Concomitant]
     Dosage: 160 MCG, PRN
     Route: 055
  33. TAGAMET HB [Concomitant]
     Dosage: 200, 2-6 DAILY

REACTIONS (32)
  - Invasive ductal breast carcinoma [Unknown]
  - Suicidal ideation [Unknown]
  - Hearing impaired [Not Recovered/Not Resolved]
  - Osteoporosis [Unknown]
  - Insomnia [Unknown]
  - Chest pain [Unknown]
  - Osteoarthritis [Unknown]
  - Arterial insufficiency [Unknown]
  - Arteriosclerosis [Unknown]
  - Arthralgia [Unknown]
  - Abdominal pain upper [Unknown]
  - Weight decreased [Unknown]
  - Depression [Unknown]
  - Bipolar disorder [Unknown]
  - Cough [Unknown]
  - Diarrhoea [Unknown]
  - Nausea [Unknown]
  - Anxiety [Unknown]
  - Gastritis [Unknown]
  - Aphagia [Unknown]
  - Fall [Unknown]
  - Loss of consciousness [Unknown]
  - Paraesthesia [Unknown]
  - Malaise [Unknown]
  - Dyspnoea [Unknown]
  - Vomiting [Unknown]
  - Palpitations [Unknown]
  - Dizziness [Unknown]
  - Dysphagia [Unknown]
  - Tremor [Unknown]
  - Off label use [Unknown]
  - Intentional drug misuse [Unknown]
